FAERS Safety Report 10236319 (Version 1)
Quarter: 2014Q2

REPORT INFORMATION
  Report Type: Report from Study
  Country: JP (occurrence: JP)
  Receive Date: 20140613
  Receipt Date: 20140613
  Transmission Date: 20141212
  Serious: Yes (Other)
  Sender: FDA-Public Use
  Company Number: JP-JNJFOC-20140511205

PATIENT
  Age: 76 Year
  Sex: Male

DRUGS (6)
  1. FENTANYL [Suspect]
     Indication: PROCEDURAL PAIN
     Route: 062
  2. FENTANYL [Suspect]
     Indication: PROCEDURAL PAIN
     Route: 062
  3. FENTANYL [Suspect]
     Indication: COMPLEX REGIONAL PAIN SYNDROME
     Route: 062
  4. FENTANYL [Suspect]
     Indication: COMPLEX REGIONAL PAIN SYNDROME
     Route: 062
  5. FENTANYL [Suspect]
     Indication: POST HERPETIC NEURALGIA
     Route: 062
  6. FENTANYL [Suspect]
     Indication: POST HERPETIC NEURALGIA
     Route: 062

REACTIONS (2)
  - Disorientation [Recovered/Resolved]
  - Dizziness [Recovered/Resolved]
